FAERS Safety Report 9469355 (Version 1)
Quarter: 2013Q3

REPORT INFORMATION
  Report Type: Spontaneous
  Country: US (occurrence: None)
  Receive Date: 20130815
  Receipt Date: 20130815
  Transmission Date: 20140515
  Serious: Yes (Other)
  Sender: FDA-Public Use
  Company Number: 2013P1017744

PATIENT
  Age: 42 Year
  Sex: 0

DRUGS (1)
  1. LITHIUM [Suspect]

REACTIONS (3)
  - Renal failure chronic [None]
  - Nephropathy toxic [None]
  - Renal cyst [None]
